FAERS Safety Report 14825873 (Version 1)
Quarter: 2018Q2

REPORT INFORMATION
  Report Type: Spontaneous
  Country: US (occurrence: US)
  Receive Date: 20180430
  Receipt Date: 20180430
  Transmission Date: 20180711
  Serious: No
  Sender: FDA-Public Use
  Company Number: US-PFIZER INC-2018170292

PATIENT
  Age: 69 Year
  Sex: Female
  Weight: 67 kg

DRUGS (3)
  1. NORVASC [Suspect]
     Active Substance: AMLODIPINE BESYLATE
     Dosage: 5 MG, UNK
  2. NORVASC [Suspect]
     Active Substance: AMLODIPINE BESYLATE
     Dosage: 2.5 MG, DAILY
     Route: 048
  3. NORVASC [Suspect]
     Active Substance: AMLODIPINE BESYLATE
     Indication: HYPERTENSION
     Dosage: 10 MG, UNK

REACTIONS (5)
  - Arthropathy [Not Recovered/Not Resolved]
  - Tremor [Not Recovered/Not Resolved]
  - Skin fissures [Not Recovered/Not Resolved]
  - Body height decreased [Unknown]
  - Weight decreased [Not Recovered/Not Resolved]

NARRATIVE: CASE EVENT DATE: 201803
